FAERS Safety Report 11485738 (Version 1)
Quarter: 2015Q3

REPORT INFORMATION
  Report Type: Spontaneous
  Country: NZ (occurrence: NZ)
  Receive Date: 20150909
  Receipt Date: 20150909
  Transmission Date: 20151125
  Serious: Yes (Other)
  Sender: FDA-Public Use
  Company Number: NZ-APOTEX-2015AP012598

PATIENT
  Age: 55 Year
  Sex: Male

DRUGS (2)
  1. ALENDRONATE [Suspect]
     Active Substance: ALENDRONATE SODIUM
     Dosage: 70 MG ONCE FORTNIGHTLY
  2. ALENDRONATE [Suspect]
     Active Substance: ALENDRONATE SODIUM
     Indication: PRODUCT USED FOR UNKNOWN INDICATION
     Dosage: 70 MG, Q.WK.
     Route: 065

REACTIONS (5)
  - Foot fracture [Unknown]
  - Osteomalacia [Recovering/Resolving]
  - Rib fracture [Unknown]
  - Spinal fracture [Unknown]
  - Patella fracture [Unknown]
